FAERS Safety Report 23014822 (Version 1)
Quarter: 2023Q4

REPORT INFORMATION
  Report Type: Spontaneous
  Country: TH (occurrence: TH)
  Receive Date: 20231002
  Receipt Date: 20231002
  Transmission Date: 20240110
  Serious: Yes (Other)
  Sender: FDA-Public Use
  Company Number: TH-002147023-NVSC2023TH208787

PATIENT
  Age: 44 Year
  Sex: Male

DRUGS (15)
  1. SACUBITRIL\VALSARTAN [Suspect]
     Active Substance: SACUBITRIL\VALSARTAN
     Indication: Product used for unknown indication
     Dosage: 50 MG, QD
     Route: 065
     Dates: start: 202011
  2. SACUBITRIL\VALSARTAN [Suspect]
     Active Substance: SACUBITRIL\VALSARTAN
     Dosage: (50=}100), QD
     Route: 065
     Dates: start: 202012
  3. SACUBITRIL\VALSARTAN [Suspect]
     Active Substance: SACUBITRIL\VALSARTAN
     Dosage: (100=}200), QD
     Route: 065
     Dates: start: 202103
  4. SACUBITRIL\VALSARTAN [Suspect]
     Active Substance: SACUBITRIL\VALSARTAN
     Dosage: 200 MG, QD
     Route: 065
     Dates: start: 202202
  5. SACUBITRIL\VALSARTAN [Suspect]
     Active Substance: SACUBITRIL\VALSARTAN
     Dosage: 200 MG, QD
     Route: 065
     Dates: start: 202209
  6. CARVEDILOL [Concomitant]
     Active Substance: CARVEDILOL
     Indication: Product used for unknown indication
     Dosage: 6.25 MG, QD
     Route: 065
     Dates: start: 202011
  7. CARVEDILOL [Concomitant]
     Active Substance: CARVEDILOL
     Dosage: 12.5 MG, QD
     Route: 065
     Dates: start: 202012
  8. CARVEDILOL [Concomitant]
     Active Substance: CARVEDILOL
     Dosage: 25 MG, QD
     Route: 065
     Dates: start: 202103
  9. CARVEDILOL [Concomitant]
     Active Substance: CARVEDILOL
     Dosage: 50 MG, QD
     Route: 065
     Dates: start: 202202
  10. CARVEDILOL [Concomitant]
     Active Substance: CARVEDILOL
     Dosage: 50 MG, QD
     Route: 065
     Dates: start: 202209
  11. FUROSEMIDE [Concomitant]
     Active Substance: FUROSEMIDE
     Indication: Product used for unknown indication
     Dosage: 160 MG, QD
     Route: 065
     Dates: start: 202011
  12. FUROSEMIDE [Concomitant]
     Active Substance: FUROSEMIDE
     Dosage: 160 MG, QD
     Route: 065
     Dates: start: 202103
  13. FUROSEMIDE [Concomitant]
     Active Substance: FUROSEMIDE
     Dosage: 120 MG, QD
     Route: 065
     Dates: start: 202202
  14. FUROSEMIDE [Concomitant]
     Active Substance: FUROSEMIDE
     Dosage: 40 MG, QD
     Route: 065
     Dates: start: 202209
  15. ALDACTONE [Concomitant]
     Active Substance: SPIRONOLACTONE
     Indication: Product used for unknown indication
     Dosage: 100 MG, QD
     Route: 065

REACTIONS (4)
  - Ejection fraction decreased [Unknown]
  - N-terminal prohormone brain natriuretic peptide increased [Unknown]
  - Cardiac function test abnormal [Recovering/Resolving]
  - Hypotension [Unknown]

NARRATIVE: CASE EVENT DATE: 20201201
